FAERS Safety Report 22314325 (Version 2)
Quarter: 2023Q2

REPORT INFORMATION
  Report Type: Spontaneous
  Country: JP (occurrence: JP)
  Receive Date: 20230512
  Receipt Date: 20230517
  Transmission Date: 20230722
  Serious: Yes (Hospitalization, Other)
  Sender: FDA-Public Use
  Company Number: JP-GLAXOSMITHKLINE-JP2023JPN066204

PATIENT

DRUGS (1)
  1. LAMICTAL [Suspect]
     Active Substance: LAMOTRIGINE
     Indication: Epilepsy
     Dosage: UNK

REACTIONS (12)
  - Stevens-Johnson syndrome [Unknown]
  - Refeeding syndrome [Unknown]
  - Skin erosion [Unknown]
  - Pyrexia [Unknown]
  - Hyponatraemia [Unknown]
  - Haemorrhage [Unknown]
  - Erythema [Unknown]
  - Oral mucosa erosion [Recovered/Resolved]
  - Pain [Unknown]
  - Feeding disorder [Recovered/Resolved]
  - Malnutrition [Unknown]
  - Hyperventilation [Unknown]
